FAERS Safety Report 5643929-9 (Version None)
Quarter: 2008Q1

REPORT INFORMATION
  Report Type: 
  Country: None (occurrence: None)
  Receive Date: 20080226
  Receipt Date: 20080216
  Transmission Date: 20080703
  Serious: Yes (Other)
  Sender: FDA-Public Use
  Company Number: CHPA2008US03013

PATIENT
  Sex: Male

DRUGS (1)
  1. MAALOX ANTACID/ANTIGAS MS LIQ COOL MINT (NCH)(MAGNESIUM HYDROXIDE, ALU [Suspect]
     Indication: DYSPEPSIA
     Dosage: 2 TABLESPOONS, ORAL
     Route: 048
     Dates: start: 20080216

REACTIONS (1)
  - FAECES DISCOLOURED [None]
